FAERS Safety Report 10467042 (Version 1)
Quarter: 2014Q3

REPORT INFORMATION
  Report Type: Spontaneous
  Country: US (occurrence: None)
  Receive Date: 20140919
  Receipt Date: 20140919
  Transmission Date: 20150326
  Serious: Yes (Other)
  Sender: FDA-Public Use
  Company Number: None

PATIENT
  Age: 72 Year
  Sex: Male

DRUGS (1)
  1. VALSARTAN 160MG [Suspect]
     Active Substance: VALSARTAN
     Indication: HYPERTENSION
     Route: 048
     Dates: start: 20140907, end: 20140912

REACTIONS (4)
  - Product substitution issue [None]
  - Malaise [None]
  - Therapeutic response changed [None]
  - Dizziness [None]

NARRATIVE: CASE EVENT DATE: 20140912
